FAERS Safety Report 7056392-0 (Version None)
Quarter: 2010Q4

REPORT INFORMATION
  Report Type: 
  Country: None (occurrence: None)
  Receive Date: 20101021
  Receipt Date: 20101008
  Transmission Date: 20110411
  Serious: Yes (Other)
  Sender: FDA-Public Use
  Company Number: PHHY2010US62281

PATIENT
  Sex: Female

DRUGS (4)
  1. RECLAST [Suspect]
     Indication: OSTEOPOROSIS
     Dosage: 5 MG
     Route: 042
     Dates: start: 20090801
  2. RECLAST [Suspect]
     Dosage: 5 MG
     Route: 042
     Dates: start: 20100914
  3. MORPHINE [Concomitant]
     Dosage: UNK
  4. ACETAMINOPHEN [Concomitant]
     Dosage: UNK

REACTIONS (10)
  - CHILLS [None]
  - DYSSTASIA [None]
  - FEELING ABNORMAL [None]
  - FEELING COLD [None]
  - HYPERHIDROSIS [None]
  - INFLUENZA [None]
  - MYALGIA [None]
  - NEPHROLITHIASIS [None]
  - PYREXIA [None]
  - TREMOR [None]
